FAERS Safety Report 8620096-0 (Version None)
Quarter: 2012Q3

REPORT INFORMATION
  Report Type: 
  Country: None (occurrence: None)
  Receive Date: 20120824
  Receipt Date: 20120810
  Transmission Date: 20120928
  Serious: Yes (Hospitalization, Other)
  Sender: FDA-Public Use
  Company Number: JP-VERTEX PHARMACEUTICAL INC.-AE-2012-007725

PATIENT
  Age: 66 Year
  Sex: Male

DRUGS (12)
  1. NORVASC [Concomitant]
     Dosage: 0.25 MG, QD
     Route: 048
  2. REBETOL [Concomitant]
     Dosage: 400 MG, QD
     Route: 048
     Dates: start: 20120430
  3. PEGINTRON                          /01543001/ [Suspect]
     Indication: HEPATITIS C
     Route: 058
     Dates: start: 20120319, end: 20120514
  4. REBETOL [Concomitant]
     Dosage: 400 MG, QD
     Route: 048
     Dates: start: 20120319, end: 20120514
  5. DIOVAN [Concomitant]
     Dosage: 40 MG, QD
     Route: 048
  6. PEGINTRON                          /01543001/ [Suspect]
     Dosage: UNK
     Route: 058
     Dates: start: 20120524
  7. NIZATIDINE [Concomitant]
     Dosage: 150 MG, QD
     Route: 048
  8. VX-950 [Suspect]
     Indication: HEPATITIS C
     Dosage: 2250 MG, QD
     Route: 048
     Dates: start: 20120319, end: 20120514
  9. REBETOL [Concomitant]
     Dosage: 600 MG, QD
     Route: 048
     Dates: start: 20120319, end: 20120429
  10. REBETOL [Concomitant]
     Dosage: 200 MG, QD
     Route: 048
     Dates: start: 20120508, end: 20120514
  11. REBETOL [Concomitant]
     Dosage: UNK
     Route: 048
     Dates: start: 20120524
  12. URSO                               /00465701/ [Concomitant]
     Dosage: 900 MG, QD
     Route: 048

REACTIONS (2)
  - STEVENS-JOHNSON SYNDROME [None]
  - HAEMOGLOBIN DECREASED [None]
